FAERS Safety Report 9592362 (Version 1)
Quarter: 2013Q3

REPORT INFORMATION
  Report Type: Spontaneous
  Country: US (occurrence: None)
  Receive Date: 20130916
  Receipt Date: 20130916
  Transmission Date: 20140515
  Serious: No
  Sender: FDA-Public Use
  Company Number: 2013AP006547

PATIENT
  Age: 51 Year
  Sex: 0

DRUGS (2)
  1. CLOPIDOGREL TABLETS [Suspect]
  2. ENOXAPARIN [Suspect]

REACTIONS (2)
  - Contusion [None]
  - Haemorrhage [None]
